FAERS Safety Report 20323977 (Version 2)
Quarter: 2022Q1

REPORT INFORMATION
  Report Type: Report from Study
  Country: US (occurrence: US)
  Receive Date: 20220111
  Receipt Date: 20220119
  Transmission Date: 20220423
  Serious: Yes (Hospitalization)
  Sender: FDA-Public Use
  Company Number: US-PFIZER INC-202101884063

PATIENT
  Age: 57 Year
  Sex: Female
  Weight: 55.7 kg

DRUGS (3)
  1. TALAZOPARIB [Suspect]
     Active Substance: TALAZOPARIB
     Dosage: DAYS 1-3
     Route: 048
     Dates: start: 20171215
  2. CARBOPLATIN [Suspect]
     Active Substance: CARBOPLATIN
     Dosage: AUC 6 OVER 30 MIN ON DAY 1
     Route: 042
     Dates: start: 20171215
  3. TAXOL [Suspect]
     Active Substance: PACLITAXEL
     Dosage: OVER 1 HR ON DAYS 1, 8 AND 15
     Route: 042
     Dates: start: 20171215

REACTIONS (3)
  - Diarrhoea [Unknown]
  - Clostridium difficile colitis [Unknown]
  - Myalgia [Recovering/Resolving]

NARRATIVE: CASE EVENT DATE: 20180314
